FAERS Safety Report 10777240 (Version 1)
Quarter: 2015Q1

REPORT INFORMATION
  Report Type: Other
  Country: US (occurrence: US)
  Receive Date: 20150209
  Receipt Date: 20150209
  Transmission Date: 20150721
  Serious: Yes (Death)
  Sender: FDA-Public Use
  Company Number: US-FRI-1000074428

PATIENT
  Age: 40 Year
  Sex: Male

DRUGS (7)
  1. OXYCODONE [Suspect]
     Active Substance: OXYCODONE
  2. ETHANOL [Suspect]
     Active Substance: ALCOHOL
  3. HYDROCODONE [Suspect]
     Active Substance: HYDROCODONE
  4. HEROIN [Suspect]
     Active Substance: DIACETYLMORPHINE
  5. COCAINE [Suspect]
     Active Substance: COCAINE
  6. CITALOPRAM [Suspect]
     Active Substance: CITALOPRAM HYDROBROMIDE
  7. ACETAMINOPHEN. [Suspect]
     Active Substance: ACETAMINOPHEN

REACTIONS (1)
  - Drug abuse [Fatal]
